FAERS Safety Report 9723098 (Version 1)
Quarter: 2013Q4

REPORT INFORMATION
  Report Type: Spontaneous
  Country: US (occurrence: None)
  Receive Date: 20131127
  Receipt Date: 20131127
  Transmission Date: 20140711
  Serious: Yes (Hospitalization)
  Sender: FDA-Public Use
  Company Number: None

PATIENT
  Age: 66 None
  Sex: Male
  Weight: 106 kg

DRUGS (1)
  1. TESTOSTERONE [Suspect]
     Indication: PULMONARY EMBOLISM
     Route: 030
     Dates: start: 20060510, end: 20130719

REACTIONS (1)
  - Pulmonary embolism [None]
